FAERS Safety Report 16017712 (Version 1)
Quarter: 2019Q1

REPORT INFORMATION
  Report Type: Spontaneous
  Country: US (occurrence: US)
  Receive Date: 20190228
  Receipt Date: 20190228
  Transmission Date: 20190418
  Serious: No
  Sender: FDA-Public Use
  Company Number: US-ABBVIE-18S-163-2521669-00

PATIENT
  Sex: Male

DRUGS (2)
  1. ANDROGEL [Suspect]
     Active Substance: TESTOSTERONE
     Indication: PRODUCT USED FOR UNKNOWN INDICATION
     Dosage: 1 PUMP/DAY
     Route: 061
     Dates: start: 2016, end: 201810
  2. ANDROGEL [Suspect]
     Active Substance: TESTOSTERONE
     Dosage: 2 PUMPS/DAY
     Route: 061
     Dates: start: 201810

REACTIONS (1)
  - T-lymphocyte count decreased [Unknown]

NARRATIVE: CASE EVENT DATE: 2018
